FAERS Safety Report 9370128 (Version 5)
Quarter: 2013Q4

REPORT INFORMATION
  Report Type: Report from Study
  Country: AT (occurrence: AT)
  Receive Date: 20130626
  Receipt Date: 20131220
  Transmission Date: 20140711
  Serious: Yes (Hospitalization)
  Sender: FDA-Public Use
  Company Number: AT-AMGEN-AUTNI2013044207

PATIENT
  Age: 59 Year
  Sex: Female

DRUGS (7)
  1. DENOSUMAB [Suspect]
     Indication: METASTASES TO BONE
     Dosage: UNK UNK, Q4WK
     Route: 058
     Dates: start: 20130404, end: 20130531
  2. TAXOTERE [Concomitant]
     Dosage: UNK
     Dates: start: 20130305
  3. EPIRUBICIN [Concomitant]
     Dosage: 75 MG, Q3WK
     Route: 042
     Dates: start: 20130305
  4. METOHEXAL [Concomitant]
     Dosage: UNK UNK, QD
     Route: 048
     Dates: start: 2010
  5. CONCOR PLUS [Concomitant]
     Dosage: UNK UNK, QD
     Route: 048
     Dates: start: 2013
  6. BEZALIP [Concomitant]
     Dosage: 400 MG, QD
     Route: 048
     Dates: start: 2010
  7. EFECTIN [Concomitant]
     Dosage: 75 MG, QD
     Route: 048
     Dates: start: 20130416

REACTIONS (1)
  - Cellulitis [Recovered/Resolved]
